FAERS Safety Report 7261313-1 (Version None)
Quarter: 2011Q1

REPORT INFORMATION
  Report Type: 
  Country: None (occurrence: None)
  Receive Date: 20110130
  Receipt Date: 20100920
  Transmission Date: 20110831
  Serious: No
  Sender: FDA-Public Use
  Company Number: US-ABBOTT-10P-163-0672198-00

PATIENT
  Age: 45 Year
  Sex: Female

DRUGS (11)
  1. HUMIRA [Suspect]
     Indication: CROHN'S DISEASE
     Dates: start: 20100830
  2. PENTASA [Concomitant]
     Indication: CROHN'S DISEASE
  3. VITAMIN B-12 [Concomitant]
     Indication: PRODUCT USED FOR UNKNOWN INDICATION
  4. CELEXA [Concomitant]
     Indication: ANXIETY
  5. ELAVIL [Concomitant]
     Indication: SLEEP DISORDER
  6. FLONOSE [Concomitant]
     Indication: HYPERSENSITIVITY
  7. MULTI-VITAMINS [Concomitant]
     Indication: PRODUCT USED FOR UNKNOWN INDICATION
  8. MERCAPTOPURINE [Concomitant]
     Indication: CROHN'S DISEASE
     Dosage: 50MG 1 1/2 TABLETS DAILY
  9. HYROCHLOROTHYAZIDE [Concomitant]
     Indication: HYPERTENSION
  10. SUPPLEMENTS [Concomitant]
     Indication: PRODUCT USED FOR UNKNOWN INDICATION
  11. LOEGESTROL BIRTH CONTROL PILLS [Concomitant]
     Indication: PRODUCT USED FOR UNKNOWN INDICATION

REACTIONS (1)
  - INJECTION SITE HAEMATOMA [None]
